FAERS Safety Report 4698650-0 (Version None)
Quarter: 2005Q2

REPORT INFORMATION
  Report Type: 
  Country: None (occurrence: None)
  Receive Date: 20050622
  Receipt Date: 20050610
  Transmission Date: 20051028
  Serious: Yes (Hospitalization, Other)
  Sender: FDA-Public Use
  Company Number: KII-2005-0016991

PATIENT
  Age: 53 Year
  Sex: Female

DRUGS (4)
  1. OXYCONTIN [Suspect]
     Indication: DRUG USE FOR UNKNOWN INDICATION
  2. ACETAMINOPHEN AND OXYCODONE HCL [Suspect]
     Indication: DRUG USE FOR UNKNOWN INDICATION
  3. ACETAMINOPHEN AND HYDROCODONE BITARTRATE [Suspect]
     Indication: DRUG USE FOR UNKNOWN INDICATION
  4. METHAMPHETAMINE HCL [Suspect]
     Indication: DRUG USE FOR UNKNOWN INDICATION

REACTIONS (5)
  - AGITATION [None]
  - COMA [None]
  - POLYSUBSTANCE ABUSE [None]
  - SOMNOLENCE [None]
  - URINARY TRACT INFECTION [None]
